FAERS Safety Report 15487941 (Version 1)
Quarter: 2018Q4

REPORT INFORMATION
  Report Type: Spontaneous
  Country: US (occurrence: US)
  Receive Date: 20181011
  Receipt Date: 20181011
  Transmission Date: 20190205
  Serious: Yes (Hospitalization)
  Sender: FDA-Public Use
  Company Number: None

PATIENT
  Sex: Female

DRUGS (9)
  1. ASPIRIN. [Concomitant]
     Active Substance: ASPIRIN
  2. METFORMIN [Concomitant]
     Active Substance: METFORMIN HYDROCHLORIDE
  3. METHENAM [Concomitant]
  4. ROSUVASTATIN. [Concomitant]
     Active Substance: ROSUVASTATIN
  5. TEMOZOLOMIDE. [Suspect]
     Active Substance: TEMOZOLOMIDE
     Indication: BRAIN NEOPLASM MALIGNANT
     Dosage: ?          OTHER FREQUENCY:5 DAYS MONTHLY;?
     Route: 048
     Dates: start: 20170915
  6. CALCIUM [Concomitant]
     Active Substance: CALCIUM
  7. DEXAMETHASON [Concomitant]
     Active Substance: DEXAMETHASONE
  8. LISINOPRIL AND HYDROCHLOROTHIAZIDE [Concomitant]
     Active Substance: HYDROCHLOROTHIAZIDE\LISINOPRIL
  9. FISH OIL [Concomitant]
     Active Substance: FISH OIL

REACTIONS (5)
  - Pneumonia [None]
  - Impaired healing [None]
  - Urinary tract infection [None]
  - Wound [None]
  - Sepsis [None]
